FAERS Safety Report 9727418 (Version 1)
Quarter: 2013Q4

REPORT INFORMATION
  Report Type: Spontaneous
  Country: RO (occurrence: RO)
  Receive Date: 20131203
  Receipt Date: 20131203
  Transmission Date: 20140711
  Serious: Yes (Other)
  Sender: FDA-Public Use
  Company Number: RO-WATSON-2013-21582

PATIENT
  Age: 83 Year
  Sex: Male

DRUGS (9)
  1. DEXAMETHASONE (WATSON LABORATORIES) [Suspect]
     Indication: MENINGOENCEPHALITIS BACTERIAL
     Dosage: 16 MG, DAILY
     Route: 065
  2. DEXAMETHASONE (WATSON LABORATORIES) [Suspect]
     Dosage: 16 MG, DAILY
     Route: 065
     Dates: start: 20120910, end: 20120914
  3. MEROPENEM [Concomitant]
     Indication: ENCEPHALITIS
     Dosage: 6 G, DAILY
     Route: 065
  4. MEROPENEM [Concomitant]
     Dosage: 6 G, DAILY
     Route: 065
     Dates: start: 20120910, end: 20120914
  5. VANCOMYCIN [Concomitant]
     Indication: ENCEPHALITIS
     Dosage: 2 G, DAILY
     Route: 065
     Dates: start: 20120910, end: 20120914
  6. CEFTAZIDIME [Concomitant]
     Indication: MENINGOENCEPHALITIS BACTERIAL
     Dosage: 6 G, DAILY
     Route: 065
     Dates: start: 20120914, end: 20120924
  7. CARBIDOPA/LEVODOPA [Concomitant]
     Indication: PARKINSON^S DISEASE
     Dosage: UNK
     Route: 065
  8. FLUCONAZOL [Concomitant]
     Indication: OROPHARYNGEAL CANDIDIASIS
     Dosage: 400 MG, DAILY
     Route: 065
  9. FLUCONAZOL [Concomitant]
     Dosage: 200 MG, DAILY
     Route: 065
     Dates: start: 20121016, end: 20121106

REACTIONS (2)
  - Tuberculosis [Recovering/Resolving]
  - Encephalitis [Recovering/Resolving]
